FAERS Safety Report 18381536 (Version 1)
Quarter: 2020Q4

REPORT INFORMATION
  Report Type: Spontaneous
  Country: US (occurrence: US)
  Receive Date: 20201014
  Receipt Date: 20201014
  Transmission Date: 20210114
  Serious: Yes (Hospitalization)
  Sender: FDA-Public Use
  Company Number: US-MYLANLABS-2020M1086783

PATIENT
  Age: 66 Year
  Sex: Female

DRUGS (5)
  1. DESMOPRESSIN [Suspect]
     Active Substance: DESMOPRESSIN
     Indication: VASOPRESSIVE THERAPY
     Dosage: UNK
     Route: 065
     Dates: start: 2020
  2. FRESH FROZEN PLASMA [Concomitant]
     Active Substance: HUMAN PLASMA
     Indication: PRODUCT USED FOR UNKNOWN INDICATION
     Dosage: 2 UNIT TRANSFUSED
     Route: 065
     Dates: start: 2020
  3. HEPARIN [Suspect]
     Active Substance: HEPARIN SODIUM
     Indication: ANTICOAGULANT THERAPY
     Dosage: UNK
     Route: 065
     Dates: start: 2020, end: 2020
  4. NOREPINEPHRINE. [Suspect]
     Active Substance: NOREPINEPHRINE
     Indication: VASOPRESSIVE THERAPY
     Dosage: UNK
     Route: 065
     Dates: start: 2020
  5. ASPIRIN                            /00002701/ [Suspect]
     Active Substance: ASPIRIN
     Indication: ANTICOAGULANT THERAPY
     Dosage: UNK
     Route: 065
     Dates: start: 2020, end: 2020

REACTIONS (3)
  - Tongue ulceration [Unknown]
  - Pharyngeal haemorrhage [Recovered/Resolved]
  - Acute kidney injury [Unknown]

NARRATIVE: CASE EVENT DATE: 2020
